FAERS Safety Report 14540430 (Version 1)
Quarter: 2018Q1

REPORT INFORMATION
  Report Type: Spontaneous
  Country: US (occurrence: US)
  Receive Date: 20180216
  Receipt Date: 20180216
  Transmission Date: 20180509
  Serious: No
  Sender: FDA-Public Use
  Company Number: US-SYNERGY PHARMACEUTICALS INC-US-2017SNG000292

PATIENT

DRUGS (5)
  1. TRULANCE [Suspect]
     Active Substance: PLECANATIDE
     Indication: CONSTIPATION
     Dosage: 3 MG, QD, AT 6 PM
     Route: 048
     Dates: start: 201710, end: 201710
  2. MIRALAX [Concomitant]
     Active Substance: POLYETHYLENE GLYCOL 3350
     Indication: PRODUCT USED FOR UNKNOWN INDICATION
     Dosage: UNK
     Route: 065
  3. TRULANCE [Suspect]
     Active Substance: PLECANATIDE
     Dosage: 1/4 TABLET 3 DAYS A WEEK
     Route: 048
     Dates: start: 201711, end: 20171127
  4. TRULANCE [Suspect]
     Active Substance: PLECANATIDE
     Dosage: 1/4 TABLET EVERY OTHER NIGHT
     Route: 048
     Dates: start: 20171128
  5. TRULANCE [Suspect]
     Active Substance: PLECANATIDE
     Dosage: 1/2 TABLET, QD
     Route: 048
     Dates: start: 201711, end: 201711

REACTIONS (3)
  - Dyschezia [Not Recovered/Not Resolved]
  - Diarrhoea [Recovered/Resolved]
  - Product use issue [Not Recovered/Not Resolved]

NARRATIVE: CASE EVENT DATE: 201710
